FAERS Safety Report 4766183-9 (Version None)
Quarter: 2005Q3

REPORT INFORMATION
  Report Type: 
  Country: None (occurrence: None)
  Receive Date: 20050912
  Receipt Date: 20050901
  Transmission Date: 20060218
  Serious: Yes (Other)
  Sender: FDA-Public Use
  Company Number: AU-BRISTOL-MYERS SQUIBB COMPANY-13097951

PATIENT
  Age: 66 Year
  Sex: Male
  Weight: 87 kg

DRUGS (4)
  1. AVAPRO-HCT TABS 300 MG/12.5 MG [Suspect]
     Indication: HYPERTENSION
     Dosage: ?? START DATE FOR 300/12.5MG QD; TOOK 1 TAB FROM A NEW BOX; STOPPED, THEN BOUGHT A NEW BOX + TAKING.
     Route: 048
  2. CARTIA XT [Concomitant]
  3. COENZYME Q10 [Concomitant]
  4. ZOCOR [Concomitant]

REACTIONS (7)
  - AMNESIA [None]
  - BALANCE DISORDER [None]
  - CONFUSIONAL STATE [None]
  - DRUG INEFFECTIVE [None]
  - HYPERTENSION [None]
  - HYPERTENSIVE ENCEPHALOPATHY [None]
  - VOMITING [None]
